FAERS Safety Report 8275515-9 (Version None)
Quarter: 2012Q2

REPORT INFORMATION
  Report Type: 
  Country: None (occurrence: None)
  Receive Date: 20120411
  Receipt Date: 20120322
  Transmission Date: 20120825
  Serious: Yes (Death, Hospitalization)
  Sender: FDA-Public Use
  Company Number: TW-BAXTER-2012BAX000652

PATIENT

DRUGS (1)
  1. BAXTER DIANEAL PD-2, PERITONEAL DIALYSIS SOLUTION WITH 1.5% DEXTROSE [Suspect]
     Route: 033
     Dates: start: 20111201

REACTIONS (2)
  - PLEURAL EFFUSION [None]
  - RESPIRATORY FAILURE [None]
